FAERS Safety Report 6326279-7 (Version None)
Quarter: 2009Q3

REPORT INFORMATION
  Report Type: 
  Country: None (occurrence: None)
  Receive Date: 20090821
  Receipt Date: 20090812
  Transmission Date: 20100115
  Serious: Yes (Hospitalization, Disabling, Other)
  Sender: FDA-Public Use
  Company Number: CIP07000588

PATIENT
  Age: 53 Year
  Sex: Female
  Weight: 96.9 kg

DRUGS (10)
  1. ACTONEL [Suspect]
     Dosage: 35 MG WEEKLY (OFF AND ON), ORAL
     Route: 048
     Dates: start: 20040901, end: 20050301
  2. ZOLOFT [Concomitant]
  3. LEVOTHROID [Concomitant]
  4. KEFLEX /00145501/ (CEFALEXIN) TABLET [Concomitant]
  5. WELLBUTRIN [Concomitant]
  6. NEURONTIN [Concomitant]
  7. DEPAKOTE ER [Concomitant]
  8. RISPERDAL [Concomitant]
  9. T3 (LIOTHYRONINE SODIUM) [Concomitant]
  10. LAMICTAL [Concomitant]

REACTIONS (53)
  - ANKLE FRACTURE [None]
  - ANXIETY [None]
  - ARTHRALGIA [None]
  - ARTHROPATHY [None]
  - ASTHENIA [None]
  - BONE PAIN [None]
  - BURNING SENSATION [None]
  - BURSA INJURY [None]
  - CANDIDIASIS [None]
  - COMPLEX REGIONAL PAIN SYNDROME [None]
  - CONTUSION [None]
  - DEPRESSION [None]
  - EMOTIONAL DISTRESS [None]
  - EXCORIATION [None]
  - FALL [None]
  - FRACTURE MALUNION [None]
  - GROIN PAIN [None]
  - HAEMORRHAGE [None]
  - HEAD INJURY [None]
  - HEADACHE [None]
  - HYPOAESTHESIA [None]
  - IMPAIRED HEALING [None]
  - INCISION SITE ERYTHEMA [None]
  - INCISION SITE HAEMORRHAGE [None]
  - INCISION SITE PAIN [None]
  - INSOMNIA [None]
  - JOINT CREPITATION [None]
  - JOINT EFFUSION [None]
  - JOINT HYPEREXTENSION [None]
  - JOINT RANGE OF MOTION DECREASED [None]
  - JOINT STIFFNESS [None]
  - JOINT SWELLING [None]
  - LIGAMENT RUPTURE [None]
  - LIMB INJURY [None]
  - MUSCLE SPASMS [None]
  - MUSCULOSKELETAL DISORDER [None]
  - MUSCULOSKELETAL STIFFNESS [None]
  - NODULE ON EXTREMITY [None]
  - OEDEMA PERIPHERAL [None]
  - OSTEONECROSIS [None]
  - PARAESTHESIA [None]
  - POST PROCEDURAL DRAINAGE [None]
  - PURULENT DISCHARGE [None]
  - RADIUS FRACTURE [None]
  - SKIN DISCOLOURATION [None]
  - SKIN LACERATION [None]
  - STITCH ABSCESS [None]
  - SUICIDAL IDEATION [None]
  - SWELLING FACE [None]
  - TENDONITIS [None]
  - TINEL'S SIGN [None]
  - TRIGGER FINGER [None]
  - UNEQUAL LIMB LENGTH [None]
